FAERS Safety Report 7390135-6 (Version None)
Quarter: 2011Q1

REPORT INFORMATION
  Report Type: 
  Country: None (occurrence: None)
  Receive Date: 20110324
  Receipt Date: 20110318
  Transmission Date: 20110831
  Serious: Yes (Hospitalization, Other)
  Sender: FDA-Public Use
  Company Number: 20119866

PATIENT
  Sex: Male

DRUGS (1)
  1. LIORESAL [Suspect]
     Indication: MUSCLE SPASTICITY
     Dosage: 412 MCG, DAILY, INTRATHECAL
     Route: 024

REACTIONS (11)
  - MUSCLE SPASTICITY [None]
  - PUMP RESERVOIR ISSUE [None]
  - TREMOR [None]
  - INJURY [None]
  - CARDIOVASCULAR DISORDER [None]
  - HYPERTONIA [None]
  - INSOMNIA [None]
  - UNEVALUABLE EVENT [None]
  - DEVICE OCCLUSION [None]
  - DEVICE MALFUNCTION [None]
  - DRUG WITHDRAWAL SYNDROME [None]
